FAERS Safety Report 9039070 (Version 1)
Quarter: 2013Q1

REPORT INFORMATION
  Report Type: Spontaneous
  Country: US (occurrence: None)
  Receive Date: 20130122
  Receipt Date: 20130122
  Transmission Date: 20140127
  Serious: No
  Sender: FDA-Public Use
  Company Number: None

PATIENT
  Sex: 0

DRUGS (1)
  1. LOVENOX [Suspect]
     Dosage: 100 MG Q12H SQ
     Route: 058
     Dates: start: 20130118, end: 20130118

REACTIONS (1)
  - Device malfunction [None]
